FAERS Safety Report 4384932-9 (Version None)
Quarter: 2004Q2

REPORT INFORMATION
  Report Type: 
  Country: None (occurrence: None)
  Receive Date: 20040621
  Receipt Date: 20040610
  Transmission Date: 20050107
  Serious: Yes (Hospitalization)
  Sender: FDA-Public Use
  Company Number: US-JNJFOC-20040603034

PATIENT
  Age: 62 Year
  Sex: Female

DRUGS (4)
  1. DURAGESIC [Suspect]
     Indication: PAIN
     Dosage: 100 UG/HR, 1 IN 72 HOUR, TRANSDERMAL
     Route: 062
     Dates: start: 20020101
  2. DICYCLOMINE (DICYCLOVERINE HYDROCHLORIDE) TABLETS [Concomitant]
  3. PRILOSEC [Concomitant]
  4. PERCOCET (OXYCOCET) TABLETS [Concomitant]

REACTIONS (6)
  - DIARRHOEA [None]
  - EYE INFECTION [None]
  - EYE IRRITATION [None]
  - NAUSEA [None]
  - RENAL FAILURE [None]
  - VOMITING [None]
